FAERS Safety Report 14300217 (Version 2)
Quarter: 2018Q4

REPORT INFORMATION
  Report Type: Spontaneous
  Country: FR (occurrence: FR)
  Receive Date: 20171219
  Receipt Date: 20181022
  Transmission Date: 20190204
  Serious: Yes (Other)
  Sender: FDA-Public Use
  Company Number: FR-MERCK KGAA-2037369

PATIENT
  Age: 47 Year
  Sex: Female

DRUGS (2)
  1. EUTHYROX [Suspect]
     Active Substance: LEVOTHYROXINE SODIUM
     Dates: start: 20170921
  2. EUTHYROX [Suspect]
     Active Substance: LEVOTHYROXINE SODIUM
     Indication: PRODUCT USED FOR UNKNOWN INDICATION
     Dates: start: 20170921

REACTIONS (17)
  - Depression [None]
  - Pain in extremity [None]
  - Somnolence [None]
  - Drug intolerance [None]
  - Insomnia [None]
  - Palpitations [None]
  - Malaise [None]
  - Disturbance in attention [None]
  - Social avoidant behaviour [None]
  - Loss of libido [None]
  - Fatigue [None]
  - Crying [None]
  - Headache [None]
  - Anxiety [None]
  - Paraesthesia [None]
  - Impaired work ability [None]
  - Cervical radiculopathy [None]

NARRATIVE: CASE EVENT DATE: 2017
